FAERS Safety Report 8790051 (Version 1)
Quarter: 2012Q4

REPORT INFORMATION
  Report Type: 
  Country: JP (occurrence: JP)
  Receive Date: 20120917
  Receipt Date: 20120917
  Transmission Date: 20130627
  Serious: Yes (Life-Threatening)
  Sender: FDA-Public Use
  Company Number: JP-GILEAD-2012-0060922

PATIENT
  Sex: Female

DRUGS (4)
  1. AMBRISENTAN [Suspect]
     Indication: PULMONARY ARTERIAL HYPERTENSION
     Dosage: 2.5 mg, UNK
     Route: 048
     Dates: start: 20120629, end: 20120713
  2. ADCIRCA [Concomitant]
     Route: 048
  3. WARFARIN [Concomitant]
     Route: 048
  4. EURODIN                            /00401202/ [Concomitant]
     Route: 048

REACTIONS (1)
  - Pneumonia [Unknown]
